FAERS Safety Report 5328768-0 (Version None)
Quarter: 2007Q2

REPORT INFORMATION
  Report Type: 
  Country: None (occurrence: None)
  Receive Date: 20070516
  Receipt Date: 20070516
  Transmission Date: 20071010
  Serious: Yes (Other)
  Sender: FDA-Public Use
  Company Number: None

PATIENT

DRUGS (1)
  1. BONIVA [Suspect]
     Indication: BONE DISORDER
     Dosage: ONCE A MONTH
     Dates: start: 20070410, end: 20070411

REACTIONS (9)
  - ASTHENIA [None]
  - BONE DISORDER [None]
  - DRY MOUTH [None]
  - INFLUENZA LIKE ILLNESS [None]
  - MOOD ALTERED [None]
  - MOVEMENT DISORDER [None]
  - PLEURISY [None]
  - PREMENSTRUAL SYNDROME [None]
  - VISUAL DISTURBANCE [None]
